FAERS Safety Report 10112374 (Version 2)
Quarter: 2014Q2

REPORT INFORMATION
  Report Type: Report from Study
  Country: US (occurrence: US)
  Receive Date: 20140425
  Receipt Date: 20140521
  Transmission Date: 20141212
  Serious: Yes (Hospitalization)
  Sender: FDA-Public Use
  Company Number: US-ABBVIE-14P-163-1227381-00

PATIENT
  Age: 41 Year
  Sex: Male

DRUGS (5)
  1. HUMIRA [Suspect]
     Indication: COLITIS ULCERATIVE
     Route: 058
     Dates: start: 201312
  2. HUMIRA [Suspect]
     Route: 058
     Dates: start: 201404
  3. DECLOMYCIN [Suspect]
     Indication: SEPSIS
     Route: 042
     Dates: start: 201404
  4. GABAPENTIN [Concomitant]
     Indication: HEADACHE
  5. DOXYCYCLINE [Concomitant]
     Indication: ROSACEA

REACTIONS (6)
  - Convulsion [Recovering/Resolving]
  - Thrombosis [Recovering/Resolving]
  - Brain neoplasm [Recovering/Resolving]
  - Pulmonary embolism [Recovering/Resolving]
  - Sepsis [Not Recovered/Not Resolved]
  - Thrombosis [Not Recovered/Not Resolved]
